FAERS Safety Report 7304745-5 (Version None)
Quarter: 2011Q1

REPORT INFORMATION
  Report Type: 
  Country: None (occurrence: None)
  Receive Date: 20110222
  Receipt Date: 20110215
  Transmission Date: 20110831
  Serious: No
  Sender: FDA-Public Use
  Company Number: US-PFIZER INC-2010162827

PATIENT
  Sex: Male
  Weight: 78.005 kg

DRUGS (3)
  1. NORPACE [Suspect]
     Indication: ARRHYTHMIA
     Dosage: 150 MG, UNK
     Route: 048
  2. RYTHMOL [Concomitant]
     Dosage: UNK
  3. CORDARONE [Suspect]
     Dosage: UNK

REACTIONS (2)
  - EYE DISORDER [None]
  - DRY MOUTH [None]
